FAERS Safety Report 12212345 (Version 1)
Quarter: 2016Q1

REPORT INFORMATION
  Report Type: Other
  Country: US (occurrence: US)
  Receive Date: 20160325
  Receipt Date: 20160325
  Transmission Date: 20160526
  Serious: No
  Sender: FDA-Public Use
  Company Number: US-DEP_02587_2015

PATIENT
  Age: 58 Year
  Sex: Male
  Weight: 76 kg

DRUGS (4)
  1. GRALISE [Suspect]
     Active Substance: GABAPENTIN
     Indication: PAIN
     Dosage: SAMPLE PACK, TITRATED UP TO 1800 MG, ONCE DAILY
     Route: 048
     Dates: start: 20150224
  2. CHEMOTHERAPY [Concomitant]
     Active Substance: UNSPECIFIED INGREDIENT
     Indication: NEOPLASM MALIGNANT
     Dosage: DF
  3. GRALISE [Suspect]
     Active Substance: GABAPENTIN
     Indication: NEURALGIA
     Dosage: SAMPLE PACK, TITRATED UP TO 1800 MG, ONCE DAILY
     Route: 048
     Dates: start: 20150224
  4. GRALISE [Suspect]
     Active Substance: GABAPENTIN
     Indication: OFF LABEL USE
     Dosage: SAMPLE PACK, TITRATED UP TO 1800 MG, ONCE DAILY
     Route: 048
     Dates: start: 20150224

REACTIONS (2)
  - Dizziness [Not Recovered/Not Resolved]
  - Somnolence [Not Recovered/Not Resolved]

NARRATIVE: CASE EVENT DATE: 20150310
